FAERS Safety Report 8865557 (Version 2)
Quarter: 2013Q3

REPORT INFORMATION
  Report Type: Spontaneous
  Country: US (occurrence: US)
  Receive Date: 20121024
  Receipt Date: 20130930
  Transmission Date: 20140515
  Serious: No
  Sender: FDA-Public Use
  Company Number: US-AMGEN-USASP2012003568

PATIENT
  Age: 51 Year
  Sex: Female

DRUGS (4)
  1. ENBREL [Suspect]
     Indication: PRODUCT USED FOR UNKNOWN INDICATION
     Dosage: 50 MG, QWK
     Route: 058
  2. METHOTREXATE [Concomitant]
     Dosage: 2.5 MG, UNK
  3. NEXIUM                             /01479302/ [Concomitant]
     Dosage: 40 MG, UNK
  4. THYROID [Concomitant]
     Dosage: 30 MG, UNK

REACTIONS (3)
  - Injection site bruising [Unknown]
  - Injection site paraesthesia [Unknown]
  - Injection site pain [Not Recovered/Not Resolved]
